FAERS Safety Report 19425383 (Version 1)
Quarter: 2021Q2

REPORT INFORMATION
  Report Type: Spontaneous
  Country: NL (occurrence: NL)
  Receive Date: 20210617
  Receipt Date: 20210617
  Transmission Date: 20210717
  Serious: Yes (Other)
  Sender: FDA-Public Use
  Company Number: NL-AUROBINDO-AUR-APL-2020-041476

PATIENT

DRUGS (1)
  1. CIPROFLOXACIN. [Suspect]
     Active Substance: CIPROFLOXACIN
     Indication: INTERSTITIAL LUNG DISEASE
     Dosage: 400 MILLIGRAM, TWO TIMES A DAY
     Route: 042

REACTIONS (1)
  - Pathogen resistance [Unknown]
